FAERS Safety Report 21660638 (Version 8)
Quarter: 2023Q2

REPORT INFORMATION
  Report Type: Report from Study
  Country: JP (occurrence: JP)
  Receive Date: 20221130
  Receipt Date: 20230406
  Transmission Date: 20230722
  Serious: Yes (Death, Hospitalization)
  Sender: FDA-Public Use
  Company Number: JP-ABBVIE-21K-087-3852303-00

PATIENT
  Age: 70 Year
  Sex: Female
  Weight: 51 kg

DRUGS (17)
  1. RINVOQ [Suspect]
     Active Substance: UPADACITINIB
     Indication: Rheumatoid arthritis
     Dosage: DRUG END DATE- MAR 2021
     Route: 048
     Dates: start: 20211008, end: 20211115
  2. RINVOQ [Suspect]
     Active Substance: UPADACITINIB
     Indication: Rheumatoid arthritis
     Dosage: END DATE WAS 2021. DUE TO SYSTEM VALIDATION IT WAS NOT CAPTURED IN THE REGIMEN
     Route: 048
     Dates: start: 20211130, end: 20220917
  3. RINVOQ [Suspect]
     Active Substance: UPADACITINIB
     Indication: Rheumatoid arthritis
     Dosage: DOSE DECREASED?7.5 MILLIGRAM
     Route: 048
     Dates: start: 20210402, end: 20210715
  4. URSODEOXYCHOLIC ACID ORION [Concomitant]
     Indication: Product used for unknown indication
     Dosage: STRENGTH-100 MG
  5. ACETAMINOPHEN [Concomitant]
     Active Substance: ACETAMINOPHEN
     Indication: Product used for unknown indication
     Dosage: 4 TABLET?STRENGTH-200 UNKNOWN
  6. TACROLIMUS [Concomitant]
     Active Substance: TACROLIMUS
     Indication: Rheumatoid arthritis
     Dates: end: 20210430
  7. PREDNISOLONE [Suspect]
     Active Substance: PREDNISOLONE
     Indication: Rheumatoid arthritis
     Dosage: 4 MILLIGRAM?1MG STRENGTH
     Route: 065
  8. ALENDRONATE SODIUM [Concomitant]
     Active Substance: ALENDRONATE SODIUM
     Indication: Product used for unknown indication
     Dosage: 35 MG PER WEEK
     Route: 048
  9. Mira [Concomitant]
     Indication: Product used for unknown indication
     Dosage: STRENGTH 25 MILLIGRAM
  10. ESOMEPRAZOLE [Concomitant]
     Active Substance: ESOMEPRAZOLE
     Indication: Product used for unknown indication
     Dosage: STRENGTH- 10 MILLIGRAM
  11. AMLODIPINE [Concomitant]
     Active Substance: AMLODIPINE BESYLATE
     Indication: Product used for unknown indication
     Dosage: 2.5 MILLIGRAM STRENGTH
  12. CANDESARTAN [Concomitant]
     Active Substance: CANDESARTAN
     Indication: Product used for unknown indication
     Dosage: STRENGTH- 4 MILLIGRAM
  13. MORPHINE HYDROCHLORIDE [Suspect]
     Active Substance: MORPHINE HYDROCHLORIDE
     Indication: Product used for unknown indication
     Dosage: 20 MILLIGRAM?STRENGTH-10 MG
     Route: 065
  14. EDOXABAN TOSYLATE [Concomitant]
     Active Substance: EDOXABAN TOSYLATE
     Indication: Product used for unknown indication
     Dosage: STRENGTH- 30 MILLIGRAM
  15. ATENOLOL [Concomitant]
     Active Substance: ATENOLOL
     Indication: Product used for unknown indication
     Dosage: STRENGTH- 25 MILLIGRAM
  16. FEBUXOSTAT [Concomitant]
     Active Substance: FEBUXOSTAT
     Indication: Product used for unknown indication
     Dosage: STRENGTH-20 MG
  17. HYDROCHLOROTHIAZIDE [Concomitant]
     Active Substance: HYDROCHLOROTHIAZIDE
     Indication: Product used for unknown indication
     Dosage: STRENGTH- 12.5 MILLIGRAM

REACTIONS (8)
  - Gastrointestinal motility disorder [Fatal]
  - Renal impairment [Recovering/Resolving]
  - Fall [Unknown]
  - Therapeutic product effect incomplete [Unknown]
  - COVID-19 [Recovered/Resolved]
  - Loss of personal independence in daily activities [Unknown]
  - Spinal compression fracture [Unknown]
  - Pneumocystis jirovecii pneumonia [Fatal]

NARRATIVE: CASE EVENT DATE: 20210402
